FAERS Safety Report 25146152 (Version 4)
Quarter: 2025Q3

REPORT INFORMATION
  Report Type: Spontaneous
  Country: US (occurrence: US)
  Receive Date: 20250401
  Receipt Date: 20250905
  Transmission Date: 20251021
  Serious: Yes (Hospitalization, Other)
  Sender: DOMPE FARMACEUTICI
  Company Number: US-FARMAPROD-202501-0271

PATIENT
  Age: 74 Year
  Sex: Male

DRUGS (22)
  1. OXERVATE [Suspect]
     Active Substance: CENEGERMIN-BKBJ
     Indication: Neurotrophic keratopathy
     Route: 047
     Dates: start: 20250116, end: 202502
  2. OXERVATE [Suspect]
     Active Substance: CENEGERMIN-BKBJ
     Route: 047
     Dates: start: 20250428
  3. OXERVATE [Suspect]
     Active Substance: CENEGERMIN-BKBJ
  4. NAPROXEN [Concomitant]
     Active Substance: NAPROXEN
  5. COLACE [Concomitant]
     Active Substance: DOCUSATE SODIUM
  6. TYLENOL [Concomitant]
     Active Substance: ACETAMINOPHEN
  7. HYDROXYZINE HYDROCHLORIDE [Concomitant]
     Active Substance: HYDROXYZINE HYDROCHLORIDE
  8. PROTONIX [Concomitant]
     Active Substance: PANTOPRAZOLE SODIUM
  9. FINASTERIDE [Concomitant]
     Active Substance: FINASTERIDE
  10. GABAPENTIN [Concomitant]
     Active Substance: GABAPENTIN
  11. LIPITOR [Concomitant]
     Active Substance: ATORVASTATIN CALCIUM
  12. AMLODIPINE BESYLATE [Concomitant]
     Active Substance: AMLODIPINE BESYLATE
  13. SUCRALFATE [Concomitant]
     Active Substance: SUCRALFATE
  14. SILODOSIN [Concomitant]
     Active Substance: SILODOSIN
  15. CYMBALTA [Concomitant]
     Active Substance: DULOXETINE HYDROCHLORIDE
  16. BACLOFEN [Concomitant]
     Active Substance: BACLOFEN
  17. VALSARTAN [Concomitant]
     Active Substance: VALSARTAN
  18. TAFLUPROST [Concomitant]
     Active Substance: TAFLUPROST
  19. SYSTANE (HYPROMELLOSE 2910 (4000 MPA.S)) [Concomitant]
     Active Substance: HYPROMELLOSE 2910 (4000 MPA.S)
  20. SENNA [Concomitant]
     Active Substance: SENNOSIDES
  21. NAPROSYN [Concomitant]
     Active Substance: NAPROXEN
  22. MELOXICAM [Concomitant]
     Active Substance: MELOXICAM

REACTIONS (9)
  - Hospitalisation [Unknown]
  - Hip arthroplasty [Recovered/Resolved]
  - Periorbital pain [Unknown]
  - Photophobia [Not Recovered/Not Resolved]
  - Eye pain [Unknown]
  - Product dose omission issue [Unknown]
  - Product administration error [Unknown]
  - Ocular discomfort [Unknown]
  - Wrong technique in product usage process [Unknown]

NARRATIVE: CASE EVENT DATE: 20250617
